FAERS Safety Report 8453445 (Version 2)
Quarter: 2013Q1

REPORT INFORMATION
  Report Type: Spontaneous
  Country: IT (occurrence: IT)
  Receive Date: 20120312
  Receipt Date: 20130308
  Transmission Date: 20140127
  Serious: Yes (Life-Threatening)
  Sender: FDA-Public Use
  Company Number: IT-PFIZER INC-2012061675

PATIENT
  Age: 53 Year
  Sex: Male

DRUGS (3)
  1. CAMPTO [Suspect]
     Indication: RECTAL CANCER
     Dosage: 340 MG, CYCLIC
     Route: 042
     Dates: start: 20120114, end: 20120115
  2. FLUOROURACIL ^TEVA^ [Suspect]
     Indication: RECTAL CANCER
     Dosage: 3000 MG, CYCLIC
     Route: 042
     Dates: start: 20120114, end: 20120115
  3. ERBITUX [Suspect]
     Indication: RECTAL CANCER
     Dosage: 470 MG, CYCLIC
     Route: 042
     Dates: start: 20120114, end: 20120115

REACTIONS (1)
  - Apnoea [Recovered/Resolved]
